FAERS Safety Report 13872902 (Version 1)
Quarter: 2017Q3

REPORT INFORMATION
  Report Type: Report from Study
  Country: IN (occurrence: IN)
  Receive Date: 20170816
  Receipt Date: 20170816
  Transmission Date: 20171127
  Serious: Yes (Life-Threatening, Hospitalization)
  Sender: FDA-Public Use
  Company Number: IN-ROCHE-1979491

PATIENT
  Age: 52 Year
  Sex: Male

DRUGS (2)
  1. ACCENTRIX [Suspect]
     Active Substance: RANIBIZUMAB
     Route: 031
     Dates: start: 20170715
  2. ACCENTRIX [Suspect]
     Active Substance: RANIBIZUMAB
     Indication: DIABETIC RETINAL OEDEMA
     Route: 031
     Dates: start: 20170511

REACTIONS (1)
  - Myocardial infarction [Recovered/Resolved with Sequelae]

NARRATIVE: CASE EVENT DATE: 20170731
